FAERS Safety Report 11432591 (Version 1)
Quarter: 2015Q3

REPORT INFORMATION
  Report Type: Spontaneous
  Country: IN (occurrence: IN)
  Receive Date: 20150828
  Receipt Date: 20150828
  Transmission Date: 20151125
  Serious: Yes (Death)
  Sender: FDA-Public Use
  Company Number: IN-ASTRAZENECA-2015SE82135

PATIENT
  Age: 74 Year
  Sex: Female
  Weight: 70 kg

DRUGS (8)
  1. RESUOR ASP 75 [Concomitant]
  2. RANOZEX [Concomitant]
  3. TELMESARTAN [Concomitant]
  4. GEMER [Concomitant]
  5. INAPUZE [Concomitant]
  6. NICORAN [Concomitant]
  7. PANTOCID [Concomitant]
  8. BRILINTA [Suspect]
     Active Substance: TICAGRELOR
     Indication: CORONARY ARTERY DISEASE
     Route: 048
     Dates: start: 20150713

REACTIONS (2)
  - Vascular stent thrombosis [Fatal]
  - Acute myocardial infarction [Fatal]

NARRATIVE: CASE EVENT DATE: 20150718
